FAERS Safety Report 18018833 (Version 1)
Quarter: 2020Q3

REPORT INFORMATION
  Report Type: Spontaneous
  Country: US (occurrence: US)
  Receive Date: 20200713
  Receipt Date: 20200713
  Transmission Date: 20201103
  Serious: Yes (Death)
  Sender: FDA-Public Use
  Company Number: None

PATIENT
  Age: 48 Year
  Sex: Male

DRUGS (11)
  1. DUONEB [Concomitant]
     Active Substance: ALBUTEROL SULFATE\IPRATROPIUM BROMIDE
  2. LISINOPRIL 10 MG [Concomitant]
     Active Substance: LISINOPRIL
  3. CARVEDILOL 12.5 MG [Concomitant]
     Active Substance: CARVEDILOL
  4. PROMACTA [Suspect]
     Active Substance: ELTROMBOPAG OLAMINE
     Indication: THROMBOCYTOPENIA
     Route: 048
     Dates: start: 20190708, end: 20200710
  5. HYDRALAZINE 50 MG [Concomitant]
  6. LEVOTHYROXINE 125 MCG [Concomitant]
     Active Substance: LEVOTHYROXINE SODIUM
  7. NIFEDIPINE ER 90 MG [Concomitant]
  8. ALBUTEROL HFA [Concomitant]
     Active Substance: ALBUTEROL SULFATE
  9. BUPROPION SR 150 MG [Concomitant]
     Active Substance: BUPROPION
  10. ISOSORBIDE MONONITRATE 30 MG [Concomitant]
  11. TRAZODONE [Concomitant]
     Active Substance: TRAZODONE HYDROCHLORIDE

REACTIONS (1)
  - Death [None]

NARRATIVE: CASE EVENT DATE: 20200710
